FAERS Safety Report 12557411 (Version 1)
Quarter: 2016Q3

REPORT INFORMATION
  Report Type: Spontaneous
  Country: FR (occurrence: FR)
  Receive Date: 20160714
  Receipt Date: 20160714
  Transmission Date: 20161109
  Serious: Yes (Other)
  Sender: FDA-Public Use
  Company Number: FR-EISAI MEDICAL RESEARCH-EC-2016-018504

PATIENT
  Sex: Male

DRUGS (5)
  1. ZARONTIN [Concomitant]
     Active Substance: ETHOSUXIMIDE
     Indication: LENNOX-GASTAUT SYNDROME
     Dosage: UNKNOWN
     Route: 065
  2. DEPAKINE [Concomitant]
     Active Substance: VALPROATE SODIUM
     Indication: LENNOX-GASTAUT SYNDROME
     Dosage: UNKNOWN
     Route: 065
  3. FYCOMPA [Suspect]
     Active Substance: PERAMPANEL
     Indication: LENNOX-GASTAUT SYNDROME
     Dosage: UNKNOWN
     Route: 048
  4. KEPPRA [Concomitant]
     Active Substance: LEVETIRACETAM
     Indication: LENNOX-GASTAUT SYNDROME
     Dosage: UNKNOWN
     Route: 065
  5. LAMICTAL [Concomitant]
     Active Substance: LAMOTRIGINE
     Indication: LENNOX-GASTAUT SYNDROME
     Dosage: UNKNOWN
     Route: 065

REACTIONS (3)
  - Drug ineffective [Unknown]
  - Seizure [Unknown]
  - Off label use [Unknown]
